FAERS Safety Report 11829673 (Version 4)
Quarter: 2016Q2

REPORT INFORMATION
  Report Type: Report from Study
  Country: US (occurrence: US)
  Receive Date: 20151212
  Receipt Date: 20160616
  Transmission Date: 20160815
  Serious: No
  Sender: FDA-Public Use
  Company Number: PHEH2015US002552

PATIENT
  Sex: Female
  Weight: 43.2 kg

DRUGS (7)
  1. ILARIS [Suspect]
     Active Substance: CANAKINUMAB
     Indication: CRYOPYRIN ASSOCIATED PERIODIC SYNDROME
     Dosage: 75 MG, Q6 WEEKS
     Route: 058
  2. MORTIN [Concomitant]
     Active Substance: SULFAMETHOXAZOLE\TRIMETHOPRIM
     Indication: PAIN
     Dosage: 200 MG, PRN
     Route: 048
  3. RANITIDINE. [Concomitant]
     Active Substance: RANITIDINE
     Indication: PROPHYLAXIS
  4. TRAMADOL. [Concomitant]
     Active Substance: TRAMADOL
     Indication: PROPHYLAXIS
     Dosage: 50 MG, PRN
     Route: 048
     Dates: start: 20160404
  5. RANITIDINE. [Concomitant]
     Active Substance: RANITIDINE
     Indication: APPETITE DISORDER
  6. ILARIS [Suspect]
     Active Substance: CANAKINUMAB
     Dosage: 100 MG, Q4 WEEKS
     Route: 058
     Dates: start: 20150511
  7. RANITIDINE. [Concomitant]
     Active Substance: RANITIDINE
     Indication: GASTROINTESTINAL DISORDER
     Dosage: 150 MG, BID
     Route: 048
     Dates: start: 20160425

REACTIONS (7)
  - Condition aggravated [Unknown]
  - Malaise [Recovered/Resolved]
  - Upper respiratory tract infection [Unknown]
  - Inappropriate schedule of drug administration [Unknown]
  - Influenza [Unknown]
  - Cough [Recovered/Resolved]
  - Pyrexia [Recovered/Resolved]
